FAERS Safety Report 8914994 (Version 1)
Quarter: 2012Q4

REPORT INFORMATION
  Report Type: 
  Country: US (occurrence: US)
  Receive Date: 20121116
  Receipt Date: 20121116
  Transmission Date: 20130627
  Serious: Yes (Hospitalization)
  Sender: FDA-Public Use
  Company Number: US-GLAXOSMITHKLINE-A0739792A

PATIENT
  Age: 61 Year
  Sex: Female
  Weight: 128.6 kg

DRUGS (11)
  1. TYKERB [Suspect]
     Indication: BREAST CANCER RECURRENT
     Dosage: 1250MG Unknown
     Route: 048
     Dates: start: 20080710, end: 20080714
  2. XELODA [Concomitant]
     Indication: BREAST CANCER RECURRENT
     Route: 048
  3. LIPITOR [Concomitant]
     Dosage: 10MG Per day
     Route: 048
  4. COREG [Concomitant]
     Dosage: 3.125MG Per day
     Route: 048
  5. GLUCOTROL XL [Concomitant]
     Dosage: 10MG Twice per day
  6. INDOCIN [Concomitant]
     Dosage: 50MG Three times per day
     Route: 048
  7. PROTONIX [Concomitant]
     Dosage: 40MG Per day
     Route: 048
  8. AVANDIA [Concomitant]
     Dosage: 8MG Per day
     Route: 048
  9. MAXZIDE [Concomitant]
     Dosage: 25MG Per day
  10. VALSARTAN [Concomitant]
     Dosage: 80MG Per day
     Route: 048
  11. METFORMIN [Concomitant]

REACTIONS (12)
  - Chest pain [Recovered/Resolved]
  - Neck pain [Recovered/Resolved]
  - Facial pain [Recovered/Resolved]
  - Electrocardiogram ST-T change [Recovered/Resolved]
  - Pain in jaw [Recovered/Resolved]
  - Tachycardia [Recovered/Resolved]
  - Electrocardiogram ST segment elevation [Recovered/Resolved]
  - Mitral valve incompetence [Recovered/Resolved]
  - Tricuspid valve incompetence [Recovered/Resolved]
  - Pericardial effusion [Recovered/Resolved]
  - Nausea [Recovered/Resolved]
  - Pulmonary hypertension [Recovered/Resolved]
